FAERS Safety Report 11247843 (Version 1)
Quarter: 2015Q3

REPORT INFORMATION
  Report Type: Spontaneous
  Country: GB (occurrence: GB)
  Receive Date: 20150708
  Receipt Date: 20150708
  Transmission Date: 20151125
  Serious: Yes (Hospitalization)
  Sender: FDA-Public Use
  Company Number: GB-PFIZER INC-2015220702

PATIENT
  Age: 65 Year
  Sex: Male
  Weight: 86 kg

DRUGS (3)
  1. DALTEPARIN [Concomitant]
     Active Substance: DALTEPARIN
     Dosage: UNK
  2. AXITINIB [Suspect]
     Active Substance: AXITINIB
     Indication: METASTATIC RENAL CELL CARCINOMA
     Dosage: 5 MG, 2X/DAY
     Route: 048
     Dates: start: 20150604, end: 20150611
  3. OXYCODONE [Concomitant]
     Active Substance: OXYCODONE
     Dosage: UNK

REACTIONS (5)
  - Diarrhoea [Recovered/Resolved]
  - Rash maculo-papular [Not Recovered/Not Resolved]
  - Lethargy [Unknown]
  - Acute kidney injury [Recovering/Resolving]
  - Arthralgia [Recovered/Resolved]

NARRATIVE: CASE EVENT DATE: 20150607
